FAERS Safety Report 13551462 (Version 1)
Quarter: 2017Q2

REPORT INFORMATION
  Report Type: Spontaneous
  Country: US (occurrence: US)
  Receive Date: 20170516
  Receipt Date: 20170516
  Transmission Date: 20170830
  Serious: Yes (Death, Hospitalization)
  Sender: FDA-Public Use
  Company Number: US-INGENUS PHARMACEUTICALS NJ, LLC-ING201705-000235

PATIENT
  Age: 49 Year
  Sex: Male

DRUGS (3)
  1. MELATONIN [Suspect]
     Active Substance: MELATONIN
  2. HYDROCODONE BITARTRATE AND ACETAMINOPHEN [Suspect]
     Active Substance: ACETAMINOPHEN\HYDROCODONE BITARTRATE
  3. CARISOPRODOL AND ASPIRIN [Suspect]
     Active Substance: ASPIRIN\CARISOPRODOL

REACTIONS (10)
  - Intentional overdose [Fatal]
  - Cardiac arrest [Fatal]
  - Tachypnoea [Unknown]
  - Toxicity to various agents [Unknown]
  - Mental status changes [Unknown]
  - Tachycardia [Unknown]
  - Circumstance or information capable of leading to medication error [Unknown]
  - Seizure [Unknown]
  - Agitation [Unknown]
  - Confusional state [Unknown]
